FAERS Safety Report 21222628 (Version 1)
Quarter: 2022Q3

REPORT INFORMATION
  Report Type: Spontaneous
  Country: DE (occurrence: DE)
  Receive Date: 20220817
  Receipt Date: 20220817
  Transmission Date: 20221027
  Serious: Yes (Hospitalization, Other)
  Sender: FDA-Public Use
  Company Number: DE-BRISTOL-MYERS SQUIBB COMPANY-2022-075045

PATIENT
  Age: 73 Year
  Sex: Male
  Weight: 75 kg

DRUGS (12)
  1. ELIQUIS [Suspect]
     Active Substance: APIXABAN
     Indication: Deep vein thrombosis
     Dosage: 2X5MG / 2 TIMES DAILY
     Route: 048
  2. ELIQUIS [Suspect]
     Active Substance: APIXABAN
     Route: 048
  3. ELIQUIS [Suspect]
     Active Substance: APIXABAN
     Route: 048
  4. ELIQUIS [Suspect]
     Active Substance: APIXABAN
     Route: 048
  5. BISOPROLOL -CT [Concomitant]
     Indication: Hypertension
     Dosage: 0.5 AT NOON
     Route: 065
  6. BISOPROLOL -CT [Concomitant]
     Indication: Heart rate abnormal
  7. AMLODIPINE CT [Concomitant]
     Indication: Hypertension
     Route: 065
     Dates: end: 20220713
  8. ENTRESTO [Concomitant]
     Active Substance: SACUBITRIL\VALSARTAN
     Indication: Product used for unknown indication
     Dosage: 97/103 MG 1?0?1?STRENGTH: 48.6 MG/ 51.4 MG
     Route: 065
  9. TAMSULOSIN AL [Concomitant]
     Indication: Benign prostatic hyperplasia
     Dosage: 0.4MG  0?0?1-0
     Route: 065
  10. PANTOPRAZOL- CT [Concomitant]
     Indication: Product used for unknown indication
     Route: 065
  11. METAMIZOLE [Concomitant]
     Active Substance: METAMIZOLE
     Indication: Product used for unknown indication
     Dosage: 3-4 TIMES DAILY, 40 DROPS
     Route: 065
  12. NITRENDIPINE [Concomitant]
     Active Substance: NITRENDIPINE
     Indication: Hypertension
     Route: 065

REACTIONS (8)
  - Deep vein thrombosis [Unknown]
  - Pulmonary embolism [Unknown]
  - Treatment noncompliance [Unknown]
  - COVID-19 [Unknown]
  - Cardiomyopathy [Unknown]
  - Aortic valve incompetence [Unknown]
  - Anxiety disorder [Unknown]
  - Urinary tract infection [Unknown]

NARRATIVE: CASE EVENT DATE: 20220401
